FAERS Safety Report 8608381-X (Version None)
Quarter: 2012Q3

REPORT INFORMATION
  Report Type: 
  Country: None (occurrence: None)
  Receive Date: 20120821
  Receipt Date: 20120816
  Transmission Date: 20120928
  Serious: Yes (Hospitalization)
  Sender: FDA-Public Use
  Company Number: AU-ROCHE-1103568

PATIENT
  Sex: Female
  Weight: 72 kg

DRUGS (3)
  1. PEGINTERFERON ALFA-2A [Suspect]
     Indication: PRODUCT USED FOR UNKNOWN INDICATION
     Dates: start: 20110608, end: 20110708
  2. RIBAVIRIN [Suspect]
     Indication: PRODUCT USED FOR UNKNOWN INDICATION
     Route: 048
     Dates: start: 20110608, end: 20110708
  3. QUETIAPINE FUMARATE [Concomitant]

REACTIONS (3)
  - PANCYTOPENIA [None]
  - DELUSION [None]
  - CONDITION AGGRAVATED [None]
